FAERS Safety Report 16019796 (Version 1)
Quarter: 2019Q1

REPORT INFORMATION
  Report Type: Spontaneous
  Country: US (occurrence: US)
  Receive Date: 20190228
  Receipt Date: 20190228
  Transmission Date: 20190418
  Serious: Yes (Hospitalization)
  Sender: FDA-Public Use
  Company Number: US-TEVA-2019-US-1017190

PATIENT
  Age: 16 Year
  Sex: Male

DRUGS (1)
  1. AMPICILLIN [Suspect]
     Active Substance: AMPICILLIN
     Indication: ESCHERICHIA INFECTION
     Dosage: SCHEDULED FOR 10 DAYS
     Route: 065

REACTIONS (3)
  - Salmonellosis [Recovering/Resolving]
  - Clostridium difficile colitis [Recovering/Resolving]
  - Enterocolitis bacterial [Recovering/Resolving]
